FAERS Safety Report 7656482-5 (Version None)
Quarter: 2011Q3

REPORT INFORMATION
  Report Type: 
  Country: None (occurrence: None)
  Receive Date: 20110804
  Receipt Date: 20100722
  Transmission Date: 20111222
  Serious: No
  Sender: FDA-Public Use
  Company Number: US-BAUSCH-2010BL004014

PATIENT
  Age: 73 Year
  Sex: Female

DRUGS (2)
  1. MULTI-VITAMINS [Concomitant]
     Indication: VITAMIN SUPPLEMENTATION
  2. OPCON-A [Suspect]
     Indication: EYE DISCHARGE
     Route: 047
     Dates: start: 20100721, end: 20100721

REACTIONS (1)
  - VISION BLURRED [None]
